FAERS Safety Report 6805006-0 (Version None)
Quarter: 2010Q2

REPORT INFORMATION
  Report Type: 
  Country: None (occurrence: None)
  Receive Date: 20100628
  Receipt Date: 20070825
  Transmission Date: 20101027
  Serious: No
  Sender: FDA-Public Use
  Company Number: US-PFIZER INC-2007037765

PATIENT
  Sex: Female
  Weight: 63.6 kg

DRUGS (1)
  1. GEODON [Suspect]
     Indication: BIPOLAR DISORDER
     Dates: start: 20070315, end: 20070420

REACTIONS (2)
  - POOR QUALITY SLEEP [None]
  - SOMNOLENCE [None]
